FAERS Safety Report 8543345-6 (Version None)
Quarter: 2012Q3

REPORT INFORMATION
  Report Type: 
  Country: None (occurrence: None)
  Receive Date: 20120727
  Receipt Date: 20120716
  Transmission Date: 20120928
  Serious: No
  Sender: FDA-Public Use
  Company Number: US-BAYER-2012-072223

PATIENT

DRUGS (4)
  1. ALEVE (CAPLET) [Suspect]
     Indication: EAR PAIN
     Route: 048
  2. ANTIBIOTIC DROPS [Concomitant]
  3. DROPS FOR PAIN [Concomitant]
  4. IBUPROFEN [Concomitant]

REACTIONS (1)
  - EAR PAIN [None]
